FAERS Safety Report 4928424-4 (Version None)
Quarter: 2006Q1

REPORT INFORMATION
  Report Type: 
  Country: None (occurrence: None)
  Receive Date: 20060228
  Receipt Date: 20060215
  Transmission Date: 20060701
  Serious: Yes (Hospitalization)
  Sender: FDA-Public Use
  Company Number: US-MERCK-0602USA04650

PATIENT
  Sex: Female
  Weight: 57 kg

DRUGS (22)
  1. VIOXX [Suspect]
     Indication: ARTHRITIS
     Route: 048
     Dates: start: 20000418, end: 20040801
  2. ASPIRIN [Concomitant]
     Route: 065
  3. PREMARIN [Concomitant]
     Route: 061
  4. CYCLOBENZAPRINE HYDROCHLORIDE [Concomitant]
     Route: 065
     Dates: start: 19980511, end: 20050217
  5. CIMETIDINE [Concomitant]
     Route: 065
  6. EVISTA [Concomitant]
     Route: 065
  7. ZESTRIL [Concomitant]
     Indication: HYPERTENSION
     Route: 065
     Dates: start: 20000424, end: 20051213
  8. PRAVACHOL [Concomitant]
     Route: 065
  9. PRILOSEC [Concomitant]
     Route: 065
  10. PREMARIN [Concomitant]
     Route: 065
     Dates: start: 20000825, end: 20051211
  11. FLOVENT [Concomitant]
     Route: 065
  12. VANCENASE [Concomitant]
     Route: 065
  13. ALBUTEROL [Concomitant]
     Route: 065
  14. ACIPHEX [Concomitant]
     Route: 065
  15. SEREVENT [Concomitant]
     Route: 055
  16. BAYCOL [Concomitant]
     Route: 065
  17. ACTONEL [Concomitant]
     Route: 065
  18. NASONEX [Concomitant]
     Route: 065
  19. ZOCOR [Concomitant]
     Indication: HYPERCHOLESTEROLAEMIA
     Route: 065
     Dates: start: 20010816, end: 20051212
  20. FOSAMAX [Concomitant]
     Route: 065
  21. TYLENOL (CAPLET) [Concomitant]
     Indication: ARTHRALGIA
     Route: 065
     Dates: start: 19950101
  22. LOPRESSOR [Concomitant]
     Indication: HEART RATE INCREASED
     Route: 065
     Dates: start: 20010122, end: 20051213

REACTIONS (15)
  - ANOREXIA [None]
  - ARTERIOSCLEROSIS [None]
  - CATARACT [None]
  - CHRONIC OBSTRUCTIVE PULMONARY DISEASE [None]
  - DEPRESSION [None]
  - EXOSTOSIS [None]
  - HEADACHE [None]
  - HEART RATE INCREASED [None]
  - HYPERKERATOSIS [None]
  - HYPERTENSION [None]
  - MYOCARDIAL INFARCTION [None]
  - OSTEOPENIA [None]
  - PALPITATIONS [None]
  - SCOLIOSIS [None]
  - SKIN PAPILLOMA [None]
